FAERS Safety Report 8187557 (Version 3)
Quarter: 2014Q1

REPORT INFORMATION
  Report Type: Spontaneous
  Country: US (occurrence: US)
  Receive Date: 20111018
  Receipt Date: 20140214
  Transmission Date: 20141002
  Serious: Yes (Hospitalization)
  Sender: FDA-Public Use
  Company Number: US-ASTRAZENECA-2010SE41117

PATIENT
  Age: 81 Year
  Sex: Female
  Weight: 72.1 kg

DRUGS (14)
  1. SYMBICORT [Suspect]
     Indication: CHRONIC OBSTRUCTIVE PULMONARY DISEASE
     Dosage: 80/4.5 UG, 2 PUFFS TWO TIMES DAILY
     Route: 055
     Dates: start: 2010, end: 2011
  2. SYMBICORT [Suspect]
     Indication: CHRONIC OBSTRUCTIVE PULMONARY DISEASE
     Dosage: 160/4.5 UG, 2 PUFFS TWO TIMES DAILY
     Route: 055
     Dates: start: 2012
  3. SYMBICORT [Suspect]
     Indication: CHRONIC OBSTRUCTIVE PULMONARY DISEASE
     Dosage: 160/4.5 UG, 2 PUFFS TWO TIMES DAILY
     Route: 055
     Dates: start: 2011, end: 2013
  4. PULMICORT FLEXHALER [Suspect]
     Indication: CHRONIC OBSTRUCTIVE PULMONARY DISEASE
     Dosage: 180 MCG, 2 PUFFS BID
     Route: 055
     Dates: start: 20140205
  5. OTHER [Suspect]
     Route: 065
  6. ALBUTEROL [Concomitant]
     Indication: CHRONIC OBSTRUCTIVE PULMONARY DISEASE
     Dosage: PRN
     Route: 055
  7. ALBUTEROL [Concomitant]
     Indication: CHRONIC OBSTRUCTIVE PULMONARY DISEASE
     Dosage: PRN
     Route: 055
  8. HYPERTENSION MEDICATIONS [Concomitant]
  9. OXYGEN [Concomitant]
     Indication: DYSPNOEA
     Dosage: PRN
     Route: 045
  10. LOSARTIN [Concomitant]
     Indication: BLOOD PRESSURE ABNORMAL
     Dosage: 100 MG AND THEN REDUCED HER DOSAGE BY HALF
     Route: 048
     Dates: start: 201305
  11. LOSARTIN [Concomitant]
     Indication: BLOOD PRESSURE ABNORMAL
     Route: 048
  12. ADVAIR [Concomitant]
  13. ATENOLOL [Concomitant]
  14. ATROVENT [Concomitant]
     Indication: CHRONIC OBSTRUCTIVE PULMONARY DISEASE
     Dates: start: 2013

REACTIONS (20)
  - Stress cardiomyopathy [Recovered/Resolved with Sequelae]
  - Myalgia [Unknown]
  - Sinus congestion [Unknown]
  - Pain in extremity [Unknown]
  - Nervous system disorder [Not Recovered/Not Resolved]
  - Malaise [Recovered/Resolved]
  - Weight decreased [Recovered/Resolved]
  - Weight increased [Not Recovered/Not Resolved]
  - Sleep disorder due to general medical condition, insomnia type [Unknown]
  - Blood pressure increased [Unknown]
  - Muscle spasms [Unknown]
  - Urticaria [Unknown]
  - Muscle spasms [Not Recovered/Not Resolved]
  - Insomnia [Not Recovered/Not Resolved]
  - Tongue blistering [Unknown]
  - Anxiety [Unknown]
  - Drug intolerance [Unknown]
  - Fear [Unknown]
  - Intentional drug misuse [Unknown]
  - Off label use [Unknown]
